FAERS Safety Report 4441483-0 (Version None)
Quarter: 2004Q3

REPORT INFORMATION
  Report Type: 
  Country: None (occurrence: None)
  Receive Date: 20040728
  Receipt Date: 20040506
  Transmission Date: 20050211
  Serious: No
  Sender: FDA-Public Use
  Company Number: USA040566911

PATIENT
  Age: 12 Year
  Sex: Male
  Weight: 41 kg

DRUGS (1)
  1. STRATTERA [Suspect]
     Dosage: 40 MG DAY
     Dates: start: 20031201, end: 20040504

REACTIONS (7)
  - APATHY [None]
  - DEPRESSED MOOD [None]
  - DISTURBANCE IN ATTENTION [None]
  - DIZZINESS [None]
  - FATIGUE [None]
  - IRRITABILITY [None]
  - STOMACH DISCOMFORT [None]
